FAERS Safety Report 8979405 (Version 1)
Quarter: 2012Q4

REPORT INFORMATION
  Report Type: 
  Country: US (occurrence: US)
  Receive Date: 20121221
  Receipt Date: 20121221
  Transmission Date: 20130627
  Serious: Yes (Hospitalization)
  Sender: FDA-Public Use
  Company Number: US-009507513-1212USA007966

PATIENT
  Age: 55 Year
  Sex: Male
  Weight: 106.58 kg

DRUGS (12)
  1. PEG-INTRON [Suspect]
     Dosage: 150 Microgram, qw; 150 micorgram/0.5 ml
     Route: 058
  2. RIBAVIRIN [Suspect]
  3. REQUIP [Concomitant]
  4. OMEPRAZOLE [Concomitant]
  5. ALBUTEROL [Concomitant]
     Dosage: FORMULATION:AER
  6. NUCYNTA [Concomitant]
  7. ZANAFLEX [Concomitant]
  8. CELEXA [Concomitant]
  9. NOVO-METOPROL [Concomitant]
  10. HYDROCHLOROT [Concomitant]
  11. PROMETHAZINE [Concomitant]
  12. ADVAIR [Concomitant]
     Dosage: formulation:aer,100/50

REACTIONS (4)
  - Dyspnoea [Unknown]
  - Drug dose omission [Unknown]
  - Incorrect dose administered [Unknown]
  - Product quality issue [Unknown]
